FAERS Safety Report 18895392 (Version 2)
Quarter: 2021Q1

REPORT INFORMATION
  Report Type: Spontaneous
  Country: US (occurrence: US)
  Receive Date: 20210215
  Receipt Date: 20210305
  Transmission Date: 20210420
  Serious: No
  Sender: FDA-Public Use
  Company Number: US-TEVA-2021-US-1879776

PATIENT
  Age: 64 Year
  Sex: Male

DRUGS (6)
  1. COPAXONE [Suspect]
     Active Substance: GLATIRAMER ACETATE
     Indication: MULTIPLE SCLEROSIS
     Route: 058
     Dates: start: 20201117
  2. BACLOFEN. [Concomitant]
     Active Substance: BACLOFEN
  3. GLATIRAMER [Concomitant]
     Active Substance: GLATIRAMER
  4. DALFAMPRIDINE. [Concomitant]
     Active Substance: DALFAMPRIDINE
  5. FOLIC ACID. [Concomitant]
     Active Substance: FOLIC ACID
  6. TIZANDINE [Concomitant]
     Active Substance: TIZANIDINE

REACTIONS (1)
  - Gait disturbance [Not Recovered/Not Resolved]
